FAERS Safety Report 21866937 (Version 1)
Quarter: 2023Q1

REPORT INFORMATION
  Report Type: Spontaneous
  Country: NO (occurrence: NO)
  Receive Date: 20230116
  Receipt Date: 20230116
  Transmission Date: 20230418
  Serious: Yes (Other)
  Sender: FDA-Public Use
  Company Number: None

PATIENT
  Age: 52 Year
  Sex: Female
  Weight: 60 kg

DRUGS (3)
  1. ZEPOSIA [Suspect]
     Active Substance: OZANIMOD HYDROCHLORIDE
     Indication: Multiple sclerosis
     Dates: start: 202201, end: 20221021
  2. ESTRADIOL VALERATE\NORETHINDRONE ACETATE [Concomitant]
     Active Substance: ESTRADIOL VALERATE\NORETHINDRONE ACETATE
     Indication: Oestrogen deficiency
     Dates: start: 2013
  3. ESTRADIOL VALERATE\NORETHINDRONE ACETATE [Concomitant]
     Active Substance: ESTRADIOL VALERATE\NORETHINDRONE ACETATE
     Indication: Menopausal symptoms

REACTIONS (3)
  - General physical health deterioration [Recovered/Resolved]
  - Suicidal ideation [Recovered/Resolved]
  - Off label use [Unknown]

NARRATIVE: CASE EVENT DATE: 20220101
